FAERS Safety Report 5701237-1 (Version None)
Quarter: 2008Q2

REPORT INFORMATION
  Report Type: 
  Country: None (occurrence: None)
  Receive Date: 20080410
  Receipt Date: 20080402
  Transmission Date: 20081010
  Serious: Yes (Congenital Anomaly)
  Sender: FDA-Public Use
  Company Number: ZA-BOEHRINGER INGELHEIM GMBH, GERMANY-2007-DE-07424GD

PATIENT
  Sex: Male

DRUGS (8)
  1. NEVIRAPINE [Suspect]
     Route: 064
  2. STAVUDINE [Suspect]
     Route: 064
  3. LAMIVUDINE [Suspect]
     Route: 064
  4. COTRIMOXAZOLE [Suspect]
     Route: 064
  5. ISONIAZID [Suspect]
     Route: 064
  6. RIFAMPICIN [Suspect]
     Route: 064
  7. PYRAZINAMIDE [Suspect]
     Route: 064
  8. ETHAMBUTOL HYDROCHLORIDE [Suspect]
     Route: 064

REACTIONS (2)
  - DANDY-WALKER SYNDROME [None]
  - HYDROCEPHALUS [None]
